FAERS Safety Report 10715224 (Version 2)
Quarter: 2015Q1

REPORT INFORMATION
  Report Type: Spontaneous
  Country: AT (occurrence: AT)
  Receive Date: 20150116
  Receipt Date: 20150123
  Transmission Date: 20150721
  Serious: Yes (Other)
  Sender: FDA-Public Use
  Company Number: AT-ROCHE-1521587

PATIENT
  Age: 71 Year
  Sex: Female

DRUGS (4)
  1. PEMETREXED [Suspect]
     Active Substance: PEMETREXED
     Indication: LUNG ADENOCARCINOMA
     Dosage: PALLIATIVE THERAPY
     Route: 065
     Dates: start: 201204
  2. CARBOPLATIN. [Suspect]
     Active Substance: CARBOPLATIN
     Indication: LUNG ADENOCARCINOMA
     Dosage: PALLIATIVE THERAPY
     Route: 065
     Dates: start: 201204
  3. ERLOTINIB [Suspect]
     Active Substance: ERLOTINIB
     Indication: LUNG ADENOCARCINOMA
     Dosage: 2ND LINE THERAPY
     Route: 065
     Dates: start: 201304
  4. BEVACIZUMAB [Suspect]
     Active Substance: BEVACIZUMAB
     Indication: LUNG ADENOCARCINOMA
     Dosage: PALLIATIVE THERAPY
     Route: 065
     Dates: start: 201204, end: 201310

REACTIONS (3)
  - Metastases to lymph nodes [Unknown]
  - Disease progression [Unknown]
  - Acne [Unknown]

NARRATIVE: CASE EVENT DATE: 201303
